FAERS Safety Report 9813107 (Version 1)
Quarter: 2014Q1

REPORT INFORMATION
  Report Type: Spontaneous
  Country: GB (occurrence: None)
  Receive Date: 20140109
  Receipt Date: 20140109
  Transmission Date: 20141002
  Serious: Yes (Hospitalization)
  Sender: FDA-Public Use
  Company Number: SYM-2013-14453

PATIENT
  Age: 58 Year
  Sex: 0

DRUGS (3)
  1. METRONIDAZOLE (METRONIDAZOLE) (METRONIDAZOLE) [Suspect]
     Indication: PROPHYLAXIS
     Route: 042
     Dates: start: 20110110, end: 20110110
  2. TAZOCIN [Suspect]
     Indication: NOSOCOMIAL INFECTION
     Route: 042
     Dates: start: 20110113, end: 20110119
  3. CEFUROXIME [Suspect]
     Indication: PROPHYLAXIS
     Route: 042
     Dates: start: 20110110, end: 20110110

REACTIONS (1)
  - Clostridium difficile infection [None]
